FAERS Safety Report 17265828 (Version 2)
Quarter: 2020Q2

REPORT INFORMATION
  Report Type: Report from Study
  Country: US (occurrence: US)
  Receive Date: 20200114
  Receipt Date: 20200408
  Transmission Date: 20200713
  Serious: No
  Sender: FDA-Public Use
  Company Number: NVSC2020US006103

PATIENT
  Age: 52 Year
  Sex: Female

DRUGS (1)
  1. COSENTYX [Suspect]
     Active Substance: SECUKINUMAB
     Indication: PSORIASIS
     Dosage: 300 MG, QMO
     Route: 058
     Dates: start: 201910

REACTIONS (3)
  - Skin fissures [Unknown]
  - Drug ineffective [Unknown]
  - Arthralgia [Unknown]

NARRATIVE: CASE EVENT DATE: 201911
